FAERS Safety Report 9169167 (Version 4)
Quarter: 2013Q4

REPORT INFORMATION
  Report Type: Report from Study
  Country: US (occurrence: US)
  Receive Date: 20130318
  Receipt Date: 20131010
  Transmission Date: 20140711
  Serious: Yes (Hospitalization)
  Sender: FDA-Public Use
  Company Number: US-ROCHE-1143913

PATIENT
  Age: 55 Year
  Sex: Male
  Weight: 59.8 kg

DRUGS (16)
  1. PEG-INTERFERON ALFA 2A [Suspect]
     Indication: HEPATITIS C
     Route: 058
     Dates: start: 20120713, end: 20120929
  2. RIBAVIRIN [Suspect]
     Indication: HEPATITIS C
     Route: 048
     Dates: start: 20120713, end: 20120805
  3. RIBAVIRIN [Suspect]
     Route: 048
     Dates: start: 20120805, end: 20120929
  4. TELAPREVIR [Suspect]
     Indication: HEPATITIS C
     Route: 048
     Dates: start: 20120713, end: 20120929
  5. BUPROPION HYDROCHLORIDE [Concomitant]
     Indication: HIV INFECTION
     Route: 065
     Dates: start: 20120423, end: 20120727
  6. TEMAZEPAM [Concomitant]
     Route: 065
     Dates: start: 20100510
  7. PRAVASTATIN [Concomitant]
     Route: 065
     Dates: start: 20120821
  8. ONDANSETRON [Concomitant]
     Route: 065
     Dates: start: 20120810
  9. DAPSONE [Concomitant]
     Route: 065
     Dates: start: 20120827
  10. SALBUTAMOL [Concomitant]
  11. ATRIPLA [Concomitant]
     Indication: HEPATITIS C
     Route: 065
     Dates: start: 20090617
  12. ALBUTEROL [Concomitant]
     Route: 065
     Dates: start: 20110524
  13. IBUPROFEN [Concomitant]
     Route: 065
     Dates: start: 20120713
  14. CLARITIN [Concomitant]
     Route: 065
     Dates: start: 20120724
  15. ADVAIR DISKUS [Concomitant]
     Route: 065
     Dates: start: 20120524
  16. BENADRYL [Concomitant]
     Route: 065
     Dates: start: 20120714

REACTIONS (3)
  - Anaemia [Recovered/Resolved]
  - Syncope [Recovered/Resolved]
  - Neutropenia [Not Recovered/Not Resolved]
